FAERS Safety Report 7000590-9 (Version None)
Quarter: 2010Q3

REPORT INFORMATION
  Report Type: 
  Country: None (occurrence: None)
  Receive Date: 20100920
  Receipt Date: 20070920
  Transmission Date: 20110219
  Serious: Yes (Hospitalization)
  Sender: FDA-Public Use
  Company Number: US-ASTRAZENECA-2007UW13893

PATIENT
  Age: 9012 Day
  Sex: Female
  Weight: 81.6 kg

DRUGS (13)
  1. SEROQUEL [Suspect]
     Indication: BIPOLAR DISORDER
     Route: 048
     Dates: start: 20030101
  2. SEROQUEL [Suspect]
     Indication: PARANOIA
     Route: 048
     Dates: start: 20030101
  3. SEROQUEL [Suspect]
     Route: 048
     Dates: start: 20030826, end: 20031013
  4. SEROQUEL [Suspect]
     Route: 048
     Dates: start: 20030826, end: 20031013
  5. HALDOL [Concomitant]
     Dates: start: 20061101
  6. WELLBUTRIN [Concomitant]
     Dosage: 150 TO 300 MG
     Dates: start: 20060801
  7. WELLBUTRIN [Concomitant]
     Dosage: 150 MG - 300 MG
     Route: 048
     Dates: start: 20010131
  8. RISPERDAL [Concomitant]
     Dates: start: 20031013, end: 20031125
  9. RISPERDAL [Concomitant]
     Dosage: 0.25 MG HALF AT NIGHT
     Route: 048
     Dates: start: 20031013, end: 20031125
  10. NEURONTIN [Concomitant]
     Route: 048
     Dates: start: 20010227
  11. LITHIUM CARBONATE [Concomitant]
     Route: 048
     Dates: start: 20010227
  12. ZOLOFT [Concomitant]
     Route: 048
     Dates: start: 20031125, end: 20040223
  13. EFFEXOR [Concomitant]
     Route: 048
     Dates: start: 20041214

REACTIONS (2)
  - OBSESSIVE-COMPULSIVE DISORDER [None]
  - PANCREATITIS ACUTE [None]
